FAERS Safety Report 11202817 (Version 3)
Quarter: 2016Q2

REPORT INFORMATION
  Report Type: Spontaneous
  Country: US (occurrence: US)
  Receive Date: 20150619
  Receipt Date: 20160415
  Transmission Date: 20160815
  Serious: Yes (Hospitalization, Other)
  Sender: FDA-Public Use
  Company Number: US-009507513-1506USA009594

PATIENT
  Sex: Female

DRUGS (3)
  1. ALENDRONATE SODIUM. [Suspect]
     Active Substance: ALENDRONATE SODIUM
     Indication: OSTEOPOROSIS
     Dosage: 70 MG, QW
     Route: 048
     Dates: start: 2008, end: 2009
  2. CORTICOSTEROIDS (UNSPECIFIED) [Concomitant]
     Active Substance: UNSPECIFIED INGREDIENT
     Dosage: UNK
     Dates: start: 1980
  3. FOSAMAX [Suspect]
     Active Substance: ALENDRONATE SODIUM
     Indication: OSTEOPOROSIS
     Dosage: 70 MG, QW
     Route: 048
     Dates: start: 2005, end: 2008

REACTIONS (8)
  - Ankle fracture [Unknown]
  - Vascular calcification [Unknown]
  - Femur fracture [Unknown]
  - Femur fracture [Unknown]
  - Fall [Unknown]
  - Wrist fracture [Unknown]
  - Unevaluable event [Unknown]
  - Loss of consciousness [Unknown]

NARRATIVE: CASE EVENT DATE: 20060625
